FAERS Safety Report 21135780 (Version 1)
Quarter: 2022Q3

REPORT INFORMATION
  Report Type: Spontaneous
  Country: JP (occurrence: JP)
  Receive Date: 20220727
  Receipt Date: 20220727
  Transmission Date: 20221026
  Serious: Yes (Other)
  Sender: FDA-Public Use
  Company Number: JP-SUN PHARMACEUTICAL INDUSTRIES LTD-2022R1-346344

PATIENT
  Age: 73 Year
  Sex: Female

DRUGS (18)
  1. EPINEPHRINE [Suspect]
     Active Substance: EPINEPHRINE
     Indication: Gangrene
     Dosage: UNK
     Route: 065
  2. EPINEPHRINE [Suspect]
     Active Substance: EPINEPHRINE
     Indication: Septic shock
  3. EPINEPHRINE [Suspect]
     Active Substance: EPINEPHRINE
     Indication: Serratia infection
  4. DOBUTAMINE [Suspect]
     Active Substance: DOBUTAMINE HYDROCHLORIDE
     Indication: Gangrene
     Dosage: UNK
     Route: 065
  5. DOBUTAMINE [Suspect]
     Active Substance: DOBUTAMINE HYDROCHLORIDE
     Indication: Septic shock
  6. DOBUTAMINE [Suspect]
     Active Substance: DOBUTAMINE HYDROCHLORIDE
     Indication: Serratia infection
  7. HYDROCORTISONE [Suspect]
     Active Substance: HYDROCORTISONE
     Indication: Gangrene
     Dosage: UNK
     Route: 065
  8. HYDROCORTISONE [Suspect]
     Active Substance: HYDROCORTISONE
     Indication: Septic shock
  9. HYDROCORTISONE [Suspect]
     Active Substance: HYDROCORTISONE
     Indication: Serratia infection
  10. MEROPENEM [Suspect]
     Active Substance: MEROPENEM
     Indication: Gangrene
     Dosage: UNK
     Route: 065
  11. MEROPENEM [Suspect]
     Active Substance: MEROPENEM
     Indication: Septic shock
  12. MEROPENEM [Suspect]
     Active Substance: MEROPENEM
     Indication: Serratia infection
  13. TEICOPLANIN [Suspect]
     Active Substance: TEICOPLANIN
     Indication: Gangrene
     Dosage: UNK
     Route: 065
  14. TEICOPLANIN [Suspect]
     Active Substance: TEICOPLANIN
     Indication: Septic shock
  15. TEICOPLANIN [Suspect]
     Active Substance: TEICOPLANIN
     Indication: Serratia infection
  16. VASOPRESSIN [Suspect]
     Active Substance: VASOPRESSIN
     Indication: Gangrene
     Dosage: UNK
     Route: 065
  17. VASOPRESSIN [Suspect]
     Active Substance: VASOPRESSIN
     Indication: Septic shock
  18. VASOPRESSIN [Suspect]
     Active Substance: VASOPRESSIN
     Indication: Serratia infection

REACTIONS (1)
  - Disease progression [Unknown]
